FAERS Safety Report 10621448 (Version 3)
Quarter: 2015Q4

REPORT INFORMATION
  Report Type: Spontaneous
  Country: US (occurrence: US)
  Receive Date: 20141203
  Receipt Date: 20151124
  Transmission Date: 20160304
  Serious: Yes (Other)
  Sender: FDA-Public Use
  Company Number: US-JNJCP-30000253941

PATIENT
  Age: 45 Year
  Sex: Female

DRUGS (2)
  1. SHOWER TO SHOWER TALCUM PRODUCT [Suspect]
     Active Substance: TALC
     Route: 061
     Dates: start: 198010, end: 201312
  2. JOHNSON^S POWDER [Suspect]
     Active Substance: TALC
     Route: 061
     Dates: start: 198010, end: 201312

REACTIONS (2)
  - Cervix carcinoma [Unknown]
  - Ovarian cancer [Unknown]

NARRATIVE: CASE EVENT DATE: 201106
